FAERS Safety Report 5520931-9 (Version None)
Quarter: 2007Q4

REPORT INFORMATION
  Report Type: 
  Country: None (occurrence: None)
  Receive Date: 20071119
  Receipt Date: 20071112
  Transmission Date: 20080405
  Serious: Yes (Death, Life-Threatening)
  Sender: FDA-Public Use
  Company Number: CH-BRISTOL-MYERS SQUIBB COMPANY-13984612

PATIENT
  Age: 58 Year
  Sex: Male

DRUGS (4)
  1. MITOMYCIN-C [Suspect]
     Indication: LARGE CELL CARCINOMA OF THE RESPIRATORY TRACT STAGE UNSPECIFIED
     Dates: start: 20010801, end: 20010901
  2. CISPLATIN [Suspect]
     Indication: LARGE CELL CARCINOMA OF THE RESPIRATORY TRACT STAGE UNSPECIFIED
     Dates: start: 20010801, end: 20010901
  3. NAVELBINE [Suspect]
     Indication: LARGE CELL CARCINOMA OF THE RESPIRATORY TRACT STAGE UNSPECIFIED
     Route: 042
     Dates: start: 20010801, end: 20010901
  4. RADIATION THERAPY [Concomitant]
     Dosage: 1 DOSAGE FORM = 45 GRAY

REACTIONS (2)
  - ACUTE RESPIRATORY DISTRESS SYNDROME [None]
  - SEPTIC SHOCK [None]
